FAERS Safety Report 5786774-6 (Version None)
Quarter: 2008Q2

REPORT INFORMATION
  Report Type: 
  Country: None (occurrence: None)
  Receive Date: 20080618
  Receipt Date: 20080606
  Transmission Date: 20081010
  Serious: Yes (Hospitalization, Disabling)
  Sender: FDA-Public Use
  Company Number: 2008BI012341

PATIENT
  Age: 58 Year
  Sex: Male

DRUGS (13)
  1. AVONEX [Suspect]
     Indication: RELAPSING-REMITTING MULTIPLE SCLEROSIS
     Dosage: 30 UG; QW; IM
     Route: 030
     Dates: start: 20070928, end: 20080115
  2. PREDONINE [Concomitant]
  3. LIPITOR [Concomitant]
  4. BUP-4 [Concomitant]
  5. GABAPEN [Concomitant]
  6. LEXOTAN [Concomitant]
  7. ALSENN [Concomitant]
  8. SENNOSIDE [Concomitant]
  9. FAMOGAST D [Concomitant]
  10. REVINBACE [Concomitant]
  11. MAGNESIUM OXIDE [Concomitant]
  12. ALENDRONATE SODIUM [Concomitant]
  13. POSTERISAN [Concomitant]

REACTIONS (9)
  - CALCULUS URETERIC [None]
  - DEHYDRATION [None]
  - ENTEROCOLITIS VIRAL [None]
  - INFECTION [None]
  - MALAISE [None]
  - MULTIPLE SCLEROSIS RELAPSE [None]
  - NAUSEA [None]
  - RENAL DISORDER [None]
  - RHABDOMYOLYSIS [None]
